FAERS Safety Report 6428528-3 (Version None)
Quarter: 2009Q4

REPORT INFORMATION
  Report Type: 
  Country: None (occurrence: None)
  Receive Date: 20091102
  Receipt Date: 20091023
  Transmission Date: 20100525
  Serious: Yes (Life-Threatening, Hospitalization)
  Sender: FDA-Public Use
  Company Number: 2009EU004089

PATIENT
  Age: 60 Year
  Sex: Male

DRUGS (4)
  1. PROGRAF [Suspect]
     Indication: RENAL TRANSPLANT
     Dosage: UNK/D, ORAL
     Route: 048
  2. CELLCEPT [Concomitant]
  3. CORTICOSTEROID NOS (CORTICOSTEROID NOS) [Concomitant]
  4. IMOVANE (ZOPICLONE [Concomitant]

REACTIONS (9)
  - ABULIA [None]
  - APATHY [None]
  - DEMYELINATION [None]
  - HYPOMANIA [None]
  - INSOMNIA [None]
  - INTENTIONAL OVERDOSE [None]
  - OBSESSIVE-COMPULSIVE DISORDER [None]
  - PSYCHOTIC DISORDER [None]
  - SCRATCH [None]
